FAERS Safety Report 4682684-6 (Version None)
Quarter: 2005Q2

REPORT INFORMATION
  Report Type: 
  Country: None (occurrence: None)
  Receive Date: 20050606
  Receipt Date: 20050526
  Transmission Date: 20051028
  Serious: Yes (Other)
  Sender: FDA-Public Use
  Company Number: CH-GLAXOSMITHKLINE-B0383350A

PATIENT
  Sex: Male

DRUGS (5)
  1. COMBIVIR [Suspect]
     Indication: HIV INFECTION
     Route: 048
  2. NEVIRAPINE [Suspect]
     Indication: HIV INFECTION
     Route: 048
  3. ENALAPRIL MALEATE [Concomitant]
     Dosage: 40MG PER DAY
     Route: 048
  4. AMLODIPINE [Concomitant]
     Dosage: 10MG PER DAY
     Route: 048
  5. ASPIRIN [Concomitant]
     Dosage: 100MG AS REQUIRED
     Route: 048

REACTIONS (3)
  - ANGINA PECTORIS [None]
  - DYSLIPIDAEMIA [None]
  - HYPERTRIGLYCERIDAEMIA [None]
